FAERS Safety Report 23315525 (Version 1)
Quarter: 2023Q4

REPORT INFORMATION
  Report Type: Spontaneous
  Country: IL (occurrence: IL)
  Receive Date: 20231219
  Receipt Date: 20231219
  Transmission Date: 20240110
  Serious: Yes (Other)
  Sender: FDA-Public Use
  Company Number: IL-AMNEAL PHARMACEUTICALS-2023-AMRX-04376

PATIENT
  Age: 15 Year
  Sex: Female

DRUGS (2)
  1. HYDROXYCHLOROQUINE SULFATE [Suspect]
     Active Substance: HYDROXYCHLOROQUINE SULFATE
     Indication: Systemic lupus erythematosus
     Dosage: UNK
     Route: 065
  2. CORTICOSTEROID NOS [Concomitant]
     Active Substance: CORTICOSTEROID NOS
     Indication: Systemic lupus erythematosus
     Dosage: UNK
     Route: 065

REACTIONS (5)
  - Papilloedema [Recovering/Resolving]
  - Myopathy [Recovering/Resolving]
  - Toxicity to various agents [Recovering/Resolving]
  - CSF protein increased [Unknown]
  - Neuropathy peripheral [Unknown]
